FAERS Safety Report 7632182-2 (Version None)
Quarter: 2011Q3

REPORT INFORMATION
  Report Type: 
  Country: None (occurrence: None)
  Receive Date: 20110725
  Receipt Date: 20110527
  Transmission Date: 20111222
  Serious: No
  Sender: FDA-Public Use
  Company Number: US-BRISTOL-MYERS SQUIBB COMPANY-15785439

PATIENT
  Age: 52 Year
  Sex: Female

DRUGS (1)
  1. COUMADIN [Suspect]
     Indication: KNEE ARTHROPLASTY
     Dates: start: 20100901

REACTIONS (1)
  - MENORRHAGIA [None]
